FAERS Safety Report 8507135-2 (Version None)
Quarter: 2012Q3

REPORT INFORMATION
  Report Type: 
  Country: None (occurrence: None)
  Receive Date: 20120712
  Receipt Date: 20120620
  Transmission Date: 20120928
  Serious: Yes (Hospitalization, Other)
  Sender: FDA-Public Use
  Company Number: JP-PFIZER INC-2012121678

PATIENT
  Age: 75 Year
  Sex: Male
  Weight: 48.05 kg

DRUGS (8)
  1. AZULFIDINE [Suspect]
     Indication: RHEUMATOID ARTHRITIS
     Dosage: 500 MG, 2X/DAY
     Route: 048
     Dates: end: 20120516
  2. DEANOSART [Concomitant]
     Dosage: 12 MG, 3X/DAY
     Route: 048
  3. RIZE [Concomitant]
     Dosage: 1 DF, 2X/DAY
     Route: 048
  4. GASCON [Concomitant]
     Dosage: 40 MG, 3X/DAY
     Route: 048
  5. ADENOSINE [Concomitant]
     Dosage: 1 DF, 3X/DAY
     Route: 048
  6. PREDNISOLONE [Concomitant]
     Dosage: UNK
     Route: 048
  7. MIYA BM [Concomitant]
     Dosage: 1 G, 3X/DAY
     Route: 048
  8. KEILASE [Concomitant]
     Dosage: 1 DF, 3X/DAY
     Route: 048

REACTIONS (2)
  - NEUTROPENIA [None]
  - ORAL CANDIDIASIS [None]
